FAERS Safety Report 9222672 (Version 3)
Quarter: 2017Q3

REPORT INFORMATION
  Report Type: Report from Study
  Country: CN (occurrence: CN)
  Receive Date: 20130410
  Receipt Date: 20170728
  Transmission Date: 20171128
  Serious: Yes (Other)
  Sender: FDA-Public Use
  Company Number: CN-ROCHE-1208724

PATIENT

DRUGS (6)
  1. ALTEPLASE. [Suspect]
     Active Substance: ALTEPLASE
     Dosage: FOR 60 MINUTES WITH THE TOTAL DOSE NOT EXCEEDING 35 MG
     Route: 042
  2. ALTEPLASE. [Suspect]
     Active Substance: ALTEPLASE
     Dosage: FOR 30 MINUTES WITH THE TOTAL DOSE NOT EXCEEDING 50 MG
     Route: 042
  3. ASPIRIN. [Suspect]
     Active Substance: ASPIRIN
     Indication: ACUTE MYOCARDIAL INFARCTION
     Dosage: 150-250 MG
     Route: 048
  4. ASPIRIN. [Suspect]
     Active Substance: ASPIRIN
     Dosage: 75-325 MG/DAY FOR AT LEAST 30 DAYS
     Route: 048
  5. ALTEPLASE. [Suspect]
     Active Substance: ALTEPLASE
     Indication: ACUTE MYOCARDIAL INFARCTION
     Route: 040
  6. HEPARIN [Concomitant]
     Active Substance: HEPARIN SODIUM
     Dosage: 60 U/KG (UP TO 4000 U)
     Route: 040

REACTIONS (1)
  - Cerebrovascular accident [Unknown]
